FAERS Safety Report 4519692-1 (Version None)
Quarter: 2004Q4

REPORT INFORMATION
  Report Type: 
  Country: None (occurrence: None)
  Receive Date: 20041206
  Receipt Date: 20041123
  Transmission Date: 20050328
  Serious: Yes (Hospitalization, Other)
  Sender: FDA-Public Use
  Company Number: PHEH2004US12642

PATIENT
  Age: 75 Year
  Sex: Male

DRUGS (5)
  1. CALCITRIOL [Concomitant]
  2. PLAVIX [Concomitant]
  3. HYDROCHLOROTHIAZIDE [Concomitant]
     Indication: OEDEMA
  4. POTASSIUM [Concomitant]
  5. MIACALCIN [Suspect]
     Indication: OSTEOPOROSIS
     Dosage: 1 SPRAY, QD
     Dates: start: 20020101, end: 20041121

REACTIONS (4)
  - DRUG INEFFECTIVE [None]
  - HAEMATOMA [None]
  - MYOCARDIAL INFARCTION [None]
  - SURGERY [None]
